FAERS Safety Report 25934580 (Version 1)
Quarter: 2025Q4

REPORT INFORMATION
  Report Type: Spontaneous
  Country: US (occurrence: US)
  Receive Date: 20251017
  Receipt Date: 20251017
  Transmission Date: 20260117
  Serious: No
  Sender: MERCK SHARP & DOHME LLC
  Company Number: US-009507513-2337499

PATIENT
  Age: 76 Year
  Sex: Male

DRUGS (1)
  1. TEDIZOLID PHOSPHATE [Suspect]
     Active Substance: TEDIZOLID PHOSPHATE
     Indication: Mycobacterium avium complex infection

REACTIONS (3)
  - Vomiting [Unknown]
  - Drug ineffective for unapproved indication [Unknown]
  - Nausea [Unknown]

NARRATIVE: CASE EVENT DATE: 20250201
